FAERS Safety Report 10594021 (Version 1)
Quarter: 2014Q4

REPORT INFORMATION
  Report Type: Spontaneous
  Country: DE (occurrence: DE)
  Receive Date: 20141119
  Receipt Date: 20141119
  Transmission Date: 20150529
  Serious: Yes (Other)
  Sender: FDA-Public Use
  Company Number: DE-GLAXOSMITHKLINE-DE2014022359

PATIENT

DRUGS (12)
  1. LAMOTRIGINE. [Suspect]
     Active Substance: LAMOTRIGINE
     Indication: EPILEPSY
     Dosage: 175 [MG/D ]/ IN THE BEGINNING 150MG/D, THAN INCREASED TO 175MG/D
     Route: 064
     Dates: start: 20131111, end: 20140815
  2. LEVOTHYROXINE SODIUM. [Concomitant]
     Active Substance: LEVOTHYROXINE SODIUM
     Indication: HYPOTHYROIDISM
     Dosage: 250 [?G/D ]
     Route: 064
     Dates: start: 20131111, end: 20140815
  3. SUMATRIPTAN. [Concomitant]
     Active Substance: SUMATRIPTAN
     Indication: MIGRAINE
     Dosage: TWICE DURING THE 1ST TRIMESTER AND ONCE IN THE 3RD.
     Route: 064
  4. FSME-IMMUN [Concomitant]
     Indication: IMMUNISATION
     Dosage: 3RD VACCINE SHOT
     Route: 064
     Dates: start: 20140414, end: 20140414
  5. PROGESTERON [Concomitant]
     Indication: PROPHYLAXIS OF ABORTION
     Dosage: 200 [MG/D ]
     Route: 064
     Dates: start: 20131118, end: 20140815
  6. ACETYLSALICYLIC ACID [Concomitant]
     Active Substance: ASPIRIN
     Indication: PROPHYLAXIS OF ABORTION
     Dosage: 100 [MG/D ]
     Route: 064
     Dates: start: 20131111, end: 20140815
  7. DEKRISTOL [Concomitant]
     Active Substance: CHOLECALCIFEROL
     Indication: VITAMIN D DEFICIENCY
     Dosage: 20000 [I.E./WK ]
     Route: 064
     Dates: start: 20131118, end: 20140815
  8. CITALOPRAM [Suspect]
     Active Substance: CITALOPRAM HYDROBROMIDE
     Indication: DEPRESSION
     Dosage: 30 [MG/D ]
     Route: 064
     Dates: start: 20131118, end: 20140815
  9. ENGERIX B [Concomitant]
     Indication: IMMUNISATION
     Route: 064
     Dates: start: 20131127, end: 20131127
  10. FRAXIPARIN [Concomitant]
     Active Substance: NADROPARIN CALCIUM
     Indication: PROPHYLAXIS OF ABORTION
     Dosage: 2850 [I.E./D ]
     Route: 064
     Dates: start: 20131201, end: 20140812
  11. CALCIUM [Concomitant]
     Active Substance: CALCIUM
     Indication: CALCIUM DEFICIENCY
     Dosage: 1000 [MG/D ]
     Route: 064
     Dates: start: 20131118, end: 20140815
  12. FOLSAN [Concomitant]
     Active Substance: FOLIC ACID
     Indication: PROPHYLAXIS OF NEURAL TUBE DEFECT
     Dosage: 5.0 [MG/D ]
     Route: 064
     Dates: start: 20131118, end: 20140815

REACTIONS (2)
  - Agitation neonatal [Recovered/Resolved]
  - Respiratory disorder neonatal [Recovered/Resolved]

NARRATIVE: CASE EVENT DATE: 20140815
